FAERS Safety Report 8512506-4 (Version None)
Quarter: 2012Q2

REPORT INFORMATION
  Report Type: 
  Country: None (occurrence: None)
  Receive Date: 20120406
  Receipt Date: 20120229
  Transmission Date: 20120825
  Serious: Yes (Death)
  Sender: FDA-Public Use
  Company Number: US-CYPR-2011-000101

PATIENT
  Sex: Male
  Weight: 196 kg

DRUGS (12)
  1. ZOCOR [Concomitant]
  2. GLUCOSAMINE [Concomitant]
  3. CYPHER STENT (1) [Concomitant]
  4. CLOPIDOGREL [Suspect]
     Dosage: 75 MG QD ORAL
     Route: 048
     Dates: start: 20110129
  5. ASPIRIN [Suspect]
     Dosage: 81 MG QD ORAL, 325 MG QD ORAL, 81 MG QD ORAL
     Route: 048
     Dates: start: 20050101, end: 20100122
  6. ASPIRIN [Suspect]
     Dosage: 81 MG QD ORAL, 325 MG QD ORAL, 81 MG QD ORAL
     Route: 048
     Dates: start: 20100123, end: 20100216
  7. ASPIRIN [Suspect]
     Dosage: 81 MG QD ORAL, 325 MG QD ORAL, 81 MG QD ORAL
     Route: 048
     Dates: start: 20100217, end: 20110919
  8. CYPHER STENT (2) [Concomitant]
  9. CYPHER STENT (3) [Concomitant]
  10. METOPROLOL SUCCINATE [Concomitant]
  11. FISH [Concomitant]
  12. LISINOPRIL [Concomitant]

REACTIONS (1)
  - DEATH [None]
